FAERS Safety Report 5382605-7 (Version None)
Quarter: 2007Q3

REPORT INFORMATION
  Report Type: 
  Country: None (occurrence: None)
  Receive Date: 20070710
  Receipt Date: 20070628
  Transmission Date: 20080115
  Serious: Yes (Hospitalization)
  Sender: FDA-Public Use
  Company Number: PHNU2007DE02328

PATIENT
  Sex: Female

DRUGS (2)
  1. LEPONEX [Suspect]
     Indication: SCHIZOPHRENIA
     Dosage: 525 MG/DAY
     Route: 048
  2. FLUANXOL ^BAYER^ [Concomitant]
     Indication: SCHIZOPHRENIA

REACTIONS (8)
  - BLOOD THYROID STIMULATING HORMONE DECREASED [None]
  - DRUG LEVEL INCREASED [None]
  - FATIGUE [None]
  - HYPOTENSION [None]
  - LISTLESS [None]
  - TACHYCARDIA [None]
  - THYROID FUNCTION TEST ABNORMAL [None]
  - TRI-IODOTHYRONINE FREE DECREASED [None]
